FAERS Safety Report 5534849-9 (Version None)
Quarter: 2007Q4

REPORT INFORMATION
  Report Type: 
  Country: None (occurrence: None)
  Receive Date: 20071205
  Receipt Date: 20071116
  Transmission Date: 20080405
  Serious: Yes (Death)
  Sender: FDA-Public Use
  Company Number: AU-GENENTECH-250827

PATIENT
  Age: 61 Year
  Sex: Male
  Weight: 95 kg

DRUGS (1)
  1. METALYSE [Suspect]
     Indication: PULMONARY EMBOLISM
     Dosage: 150 MG, UNK
     Dates: start: 20071024

REACTIONS (2)
  - BRADYCARDIA [None]
  - CARDIAC ARREST [None]
